FAERS Safety Report 11430364 (Version 1)
Quarter: 2015Q3

REPORT INFORMATION
  Report Type: Spontaneous
  Country: US (occurrence: US)
  Receive Date: 20150828
  Receipt Date: 20150828
  Transmission Date: 20151125
  Serious: No
  Sender: FDA-Public Use
  Company Number: PHEH2014US024887

PATIENT
  Sex: Female

DRUGS (7)
  1. METOPROLOL [Concomitant]
     Active Substance: METOPROLOL
     Indication: BLOOD PRESSURE MEASUREMENT
     Route: 065
  2. RECLAST [Suspect]
     Active Substance: ZOLEDRONIC ACID
     Dosage: UNK
     Route: 042
  3. LISINOPRIL. [Concomitant]
     Active Substance: LISINOPRIL
     Indication: BLOOD PRESSURE MEASUREMENT
     Route: 065
  4. PAXIL [Concomitant]
     Active Substance: PAROXETINE HYDROCHLORIDE
     Indication: MIGRAINE
     Dosage: 5 MG, UNK
     Route: 065
  5. RECLAST [Suspect]
     Active Substance: ZOLEDRONIC ACID
     Dosage: UNK
     Route: 042
  6. OMEPRAZOLE. [Concomitant]
     Active Substance: OMEPRAZOLE
     Indication: GASTROINTESTINAL DISORDER
     Route: 065
  7. RECLAST [Suspect]
     Active Substance: ZOLEDRONIC ACID
     Indication: OSTEITIS DEFORMANS
     Route: 042

REACTIONS (11)
  - Tooth fracture [Unknown]
  - Arthralgia [Unknown]
  - Vitamin D decreased [Unknown]
  - Alopecia [Unknown]
  - Limb discomfort [Unknown]
  - Pain [Unknown]
  - Hair texture abnormal [Unknown]
  - Pain in jaw [Unknown]
  - Bone loss [Unknown]
  - Bone pain [Unknown]
  - Groin pain [Unknown]

NARRATIVE: CASE EVENT DATE: 2014
